FAERS Safety Report 15142336 (Version 2)
Quarter: 2019Q1

REPORT INFORMATION
  Report Type: Spontaneous
  Country: FR (occurrence: FR)
  Receive Date: 20180713
  Receipt Date: 20190104
  Transmission Date: 20190417
  Serious: Yes (Hospitalization)
  Sender: FDA-Public Use
  Company Number: FR-MYLANLABS-2018M1050261

PATIENT
  Age: 65 Year
  Sex: Male

DRUGS (5)
  1. GENTAMICINE                        /00047101/ [Suspect]
     Active Substance: GENTAMICIN
     Indication: INFECTION
     Dosage: 500 MG, TOTAL
     Route: 042
     Dates: start: 20180206, end: 20180206
  2. PANTOPRAZOLE [Suspect]
     Active Substance: PANTOPRAZOLE
     Indication: PRODUCT USED FOR UNKNOWN INDICATION
     Dosage: 20 MILLIGRAM, QD (0-0-1)
     Route: 048
     Dates: start: 20180307, end: 20180312
  3. VANCOMYCIN [Suspect]
     Active Substance: VANCOMYCIN
     Indication: INFECTION
     Dosage: 3 G, QD
     Route: 042
     Dates: start: 20180206, end: 20180305
  4. RIFAMPICINE [Suspect]
     Active Substance: RIFAMPIN
     Indication: INFECTION
     Dosage: 1200 MG, QD
     Route: 042
     Dates: start: 20180213, end: 20180227
  5. RIFADINE                           /00146901/ [Suspect]
     Active Substance: RIFAMPIN
     Indication: INFECTION
     Dosage: UNK (NON RENSEIGN?E)
     Route: 048
     Dates: start: 20180227, end: 20180305

REACTIONS (1)
  - Drug reaction with eosinophilia and systemic symptoms [Recovered/Resolved]

NARRATIVE: CASE EVENT DATE: 20180312
